FAERS Safety Report 18018303 (Version 11)
Quarter: 2025Q1

REPORT INFORMATION
  Report Type: Report from Study
  Country: US (occurrence: US)
  Receive Date: 20200714
  Receipt Date: 20250207
  Transmission Date: 20250408
  Serious: Yes (Other)
  Sender: TAKEDA
  Company Number: US-SHIRE-US202022446

PATIENT
  Age: 49 Year
  Sex: Female
  Weight: 95 kg

DRUGS (45)
  1. HUMAN IMMUNOGLOBULIN G [Suspect]
     Active Substance: HUMAN IMMUNOGLOBULIN G
     Indication: Myasthenia gravis
  2. HUMAN IMMUNOGLOBULIN G [Suspect]
     Active Substance: HUMAN IMMUNOGLOBULIN G
  3. BENADRYL [Suspect]
     Active Substance: DIPHENHYDRAMINE HYDROCHLORIDE
     Indication: Product used for unknown indication
  4. HEPARIN [Concomitant]
     Active Substance: HEPARIN SODIUM
  5. TRULICITY [Concomitant]
     Active Substance: DULAGLUTIDE
  6. FUROSEMIDE [Concomitant]
     Active Substance: FUROSEMIDE
  7. CALCITRIOL [Concomitant]
     Active Substance: CALCITRIOL
  8. DIPHENHYDRAMINE HYDROCHLORIDE [Concomitant]
     Active Substance: DIPHENHYDRAMINE HYDROCHLORIDE
  9. DOXYCYCLINE HYCLATE [Concomitant]
     Active Substance: DOXYCYCLINE HYCLATE
  10. AMITRIPTYLINE HYDROCHLORIDE [Concomitant]
     Active Substance: AMITRIPTYLINE HYDROCHLORIDE
  11. EPINEPHRINE [Concomitant]
     Active Substance: EPINEPHRINE
  12. SODIUM CHLORIDE [Concomitant]
     Active Substance: SODIUM CHLORIDE
  13. FEXOFENADINE HYDROCHLORIDE [Concomitant]
     Active Substance: FEXOFENADINE HYDROCHLORIDE
  14. SPIRONOLACTONE [Concomitant]
     Active Substance: SPIRONOLACTONE
  15. LISINOPRIL [Concomitant]
     Active Substance: LISINOPRIL
  16. NOVOLOG [Concomitant]
     Active Substance: INSULIN ASPART
  17. ALLEGRA-D [Concomitant]
     Active Substance: FEXOFENADINE HYDROCHLORIDE\PSEUDOEPHEDRINE HYDROCHLORIDE
  18. VIVELLE-DOT [Concomitant]
     Active Substance: ESTRADIOL
  19. LANSOPRAZOLE [Concomitant]
     Active Substance: LANSOPRAZOLE
  20. POTASSIUM CHLORIDE [Concomitant]
     Active Substance: POTASSIUM CHLORIDE
  21. FLAXSEED [Concomitant]
     Active Substance: FLAX SEED
  22. Ester-c [Concomitant]
  23. PREDNISONE [Concomitant]
     Active Substance: PREDNISONE
  24. ACETAMINOPHEN [Concomitant]
     Active Substance: ACETAMINOPHEN
  25. SYNTHROID [Concomitant]
     Active Substance: LEVOTHYROXINE SODIUM
  26. ZYRTEC [Concomitant]
     Active Substance: CETIRIZINE HYDROCHLORIDE
  27. LIDOCAINE\PRILOCAINE [Concomitant]
     Active Substance: LIDOCAINE\PRILOCAINE
  28. METRONIDAZOLE [Concomitant]
     Active Substance: METRONIDAZOLE
  29. VITAMIN B12 [Concomitant]
     Active Substance: CYANOCOBALAMIN
  30. OCUVITE [Concomitant]
     Active Substance: VITAMINS
  31. IRON [Concomitant]
     Active Substance: IRON
  32. CALCIUM [Concomitant]
     Active Substance: CALCIUM
  33. LEVOTHYROXINE [Concomitant]
     Active Substance: LEVOTHYROXINE
  34. LIDOCAINE [Concomitant]
     Active Substance: LIDOCAINE
  35. ZINC [Concomitant]
     Active Substance: ZINC
  36. PERCOCET [Concomitant]
     Active Substance: ACETAMINOPHEN\OXYCODONE HYDROCHLORIDE
  37. ADAPALENE [Concomitant]
     Active Substance: ADAPALENE
  38. AZELAIC ACID [Concomitant]
     Active Substance: AZELAIC ACID
  39. FAMOTIDINE [Concomitant]
     Active Substance: FAMOTIDINE
  40. DOCUSATE SODIUM [Concomitant]
     Active Substance: DOCUSATE SODIUM
  41. VOLTAREN ARTHRITIS PAIN [Concomitant]
     Active Substance: DICLOFENAC SODIUM
  42. MISOPROSTOL [Concomitant]
     Active Substance: MISOPROSTOL
  43. HYDROXYCHLOROQUINE SULFATE [Concomitant]
     Active Substance: HYDROXYCHLOROQUINE SULFATE
  44. VITAMIN B [Concomitant]
     Active Substance: VITAMIN B
  45. PIMECROLIMUS [Concomitant]
     Active Substance: PIMECROLIMUS

REACTIONS (16)
  - Cutaneous lupus erythematosus [Unknown]
  - Rib fracture [Unknown]
  - Drug hypersensitivity [Unknown]
  - Device alarm issue [Unknown]
  - Nasopharyngitis [Unknown]
  - Product use in unapproved indication [Unknown]
  - Sinus congestion [Unknown]
  - Systemic lupus erythematosus rash [Unknown]
  - Osteoporosis [Unknown]
  - Malaise [Recovered/Resolved]
  - Dyspnoea [Recovered/Resolved]
  - Cough [Unknown]
  - Back pain [Unknown]
  - Fatigue [Unknown]
  - Infusion site pain [Unknown]
  - Headache [Unknown]

NARRATIVE: CASE EVENT DATE: 20120105
